FAERS Safety Report 4276659-9 (Version None)
Quarter: 2004Q1

REPORT INFORMATION
  Report Type: 
  Country: None (occurrence: None)
  Receive Date: 20040120
  Receipt Date: 20040115
  Transmission Date: 20041129
  Serious: Yes (Other)
  Sender: FDA-Public Use
  Company Number: 400225410

PATIENT
  Age: 54 Year
  Sex: Female

DRUGS (3)
  1. AK-FLUOR, 10%, AKORN [Suspect]
     Indication: ANGIOGRAM RETINA
     Dosage: INTRAVENOUS
     Route: 042
     Dates: start: 20031215
  2. SOLU-MEDROL [Concomitant]
  3. CELESTENE [Concomitant]

REACTIONS (2)
  - HYPERSENSITIVITY [None]
  - MALAISE [None]
